FAERS Safety Report 16212364 (Version 2)
Quarter: 2022Q2

REPORT INFORMATION
  Report Type: Spontaneous
  Country: US (occurrence: US)
  Receive Date: 20190418
  Receipt Date: 20220503
  Transmission Date: 20220721
  Serious: No
  Sender: FDA-Public Use
  Company Number: US-PFIZER INC-2019164255

PATIENT
  Age: 88 Year
  Sex: Female
  Weight: 95.25 kg

DRUGS (1)
  1. LYRICA [Suspect]
     Active Substance: PREGABALIN
     Indication: Neuralgia
     Dosage: 150 MG, 2X/DAY
     Route: 048

REACTIONS (5)
  - Limb discomfort [Unknown]
  - Insomnia [Unknown]
  - Tremor [Unknown]
  - Hypoaesthesia [Unknown]
  - Confusional state [Unknown]
